FAERS Safety Report 8165703-4 (Version None)
Quarter: 2012Q1

REPORT INFORMATION
  Report Type: 
  Country: None (occurrence: None)
  Receive Date: 20120223
  Receipt Date: 20120223
  Transmission Date: 20120608
  Serious: Yes (Hospitalization)
  Sender: FDA-Public Use
  Company Number: None

PATIENT
  Sex: Female
  Weight: 84.8 kg

DRUGS (15)
  1. CARBOPLATIN [Suspect]
     Dosage: 673 MG
     Dates: end: 20120206
  2. PHENERGAN [Concomitant]
  3. DIOVAN [Concomitant]
  4. VERAPAMIL [Concomitant]
  5. CLONIDINE [Concomitant]
  6. COLACE [Concomitant]
  7. HYDROCHLOROTHIAZIDE [Concomitant]
  8. AMBIEN [Concomitant]
  9. POTASSIUM CHLORIDE [Concomitant]
  10. ASPIRIN [Concomitant]
  11. LEVOTHYROXINE SODIUM [Concomitant]
  12. TAXOL [Suspect]
     Dosage: 154 MG
     Dates: end: 20120213
  13. REGLAN [Concomitant]
  14. COREG [Concomitant]
  15. HYDROXYZINE [Concomitant]

REACTIONS (7)
  - PYREXIA [None]
  - DYSPNOEA [None]
  - FEELING ABNORMAL [None]
  - FATIGUE [None]
  - COUGH [None]
  - ASTHENIA [None]
  - RASH [None]
